FAERS Safety Report 19104755 (Version 3)
Quarter: 2022Q3

REPORT INFORMATION
  Report Type: Spontaneous
  Country: PK (occurrence: PK)
  Receive Date: 20210408
  Receipt Date: 20220804
  Transmission Date: 20221027
  Serious: Yes (Other)
  Sender: FDA-Public Use
  Company Number: PK-PFIZER INC-2021346710

PATIENT
  Age: 51 Year
  Sex: Male

DRUGS (10)
  1. ENBREL [Suspect]
     Active Substance: ETANERCEPT
     Indication: Psoriatic arthropathy
     Dosage: 50 MG, WEEKLY
     Route: 058
  2. ENBREL [Suspect]
     Active Substance: ETANERCEPT
     Indication: Rheumatoid arthritis
     Dosage: 50 MG, ONCE A WEEK
     Route: 058
     Dates: start: 20210422
  3. CLOTRIMAZOLE [Concomitant]
     Active Substance: CLOTRIMAZOLE
     Dosage: 20 MG (1/2+0+0)
  4. CLOTRIMAZOLE [Concomitant]
     Active Substance: CLOTRIMAZOLE
     Dosage: 10 MG, 1 DAILY
     Route: 065
  5. Distalgesic [Concomitant]
     Indication: Pain
     Dosage: 1+0+1
     Route: 065
  6. Seacal [Concomitant]
     Dosage: UNK, 2X/DAY 1+0+1
     Route: 065
  7. DELTACORTRIL [Concomitant]
     Active Substance: PREDNISOLONE
     Dosage: 5 MG, 1X/DAY (1+0+0)
     Route: 065
  8. Risek [Concomitant]
     Indication: Gastric disorder
     Dosage: 20 MG, 1X/DAY (1+0+0)
     Route: 065
  9. DICLOFENAC SODIUM [Concomitant]
     Active Substance: DICLOFENAC SODIUM
     Dosage: UNK, 1+1
  10. CAC [Concomitant]
     Dosage: UNK, 1X/DAY
     Route: 065

REACTIONS (4)
  - Psoriatic arthropathy [Unknown]
  - Glycosylated haemoglobin abnormal [Unknown]
  - Hypertension [Unknown]
  - Pyrexia [Unknown]
